FAERS Safety Report 9641256 (Version 1)
Quarter: 2013Q4

REPORT INFORMATION
  Report Type: Spontaneous
  Country: US (occurrence: None)
  Receive Date: 20131022
  Receipt Date: 20131022
  Transmission Date: 20140711
  Serious: Yes (Other)
  Sender: FDA-Public Use
  Company Number: None

PATIENT
  Age: 68 Year
  Sex: Female

DRUGS (6)
  1. AFINITOR [Suspect]
     Indication: BREAST CANCER
     Route: 048
     Dates: start: 20131004
  2. EXEMESTANE [Suspect]
     Indication: BREAST CANCER
     Route: 048
     Dates: start: 20131004
  3. PROZAC [Concomitant]
  4. FOSAMAX [Concomitant]
  5. TRAZODONE [Concomitant]
  6. LEVOTHYROXINE [Concomitant]

REACTIONS (3)
  - Dyspnoea [None]
  - Cough [None]
  - Wheezing [None]
